FAERS Safety Report 13555903 (Version 4)
Quarter: 2018Q2

REPORT INFORMATION
  Report Type: Spontaneous
  Country: FR (occurrence: FR)
  Receive Date: 20170517
  Receipt Date: 20180608
  Transmission Date: 20180711
  Serious: Yes (Death, Life-Threatening, Hospitalization, Other)
  Sender: FDA-Public Use
  Company Number: PHHY2017FR066835

PATIENT
  Age: 34 Year
  Sex: Male

DRUGS (7)
  1. METOPROLOL. [Suspect]
     Active Substance: METOPROLOL
     Indication: PRODUCT USED FOR UNKNOWN INDICATION
     Dosage: 100 MG, QD
     Route: 048
  2. CLOBAZAM [Concomitant]
     Active Substance: CLOBAZAM
     Indication: EPILEPSY
     Dosage: 5 MG, QD
     Route: 065
  3. LAMOTRIGINE. [Concomitant]
     Active Substance: LAMOTRIGINE
     Indication: EPILEPSY
     Dosage: 200 MG, QD
     Route: 065
  4. LACOSAMIDE. [Suspect]
     Active Substance: LACOSAMIDE
     Indication: EPILEPSY
     Dosage: 400 MG, QD
     Route: 048
  5. METOPROLOL. [Suspect]
     Active Substance: METOPROLOL
     Dosage: 3.5 G, UNK
     Route: 048
  6. LACOSAMIDE. [Suspect]
     Active Substance: LACOSAMIDE
     Dosage: 8.4 G, UNK
     Route: 048
  7. PERAMPANEL [Concomitant]
     Active Substance: PERAMPANEL
     Indication: EPILEPSY
     Dosage: 8 MG, QD
     Route: 065

REACTIONS (11)
  - Suicide attempt [Fatal]
  - Toxicity to various agents [Fatal]
  - Atrioventricular block [Fatal]
  - Apnoea [Fatal]
  - Cardiac arrest [Fatal]
  - Multiple organ dysfunction syndrome [Fatal]
  - Metabolic acidosis [Unknown]
  - Renal failure [Fatal]
  - Mydriasis [Fatal]
  - Seizure [Fatal]
  - Shock [Fatal]
